FAERS Safety Report 8563919-6 (Version None)
Quarter: 2012Q3

REPORT INFORMATION
  Report Type: 
  Country: None (occurrence: None)
  Receive Date: 20120803
  Receipt Date: 20120726
  Transmission Date: 20120928
  Serious: Yes (Hospitalization)
  Sender: FDA-Public Use
  Company Number: US-BAYER-2011-122883

PATIENT
  Age: 25 Year
  Sex: Female

DRUGS (14)
  1. METFORMIN HYDROCHLORIDE [Concomitant]
     Dosage: UNK
     Dates: start: 20060101
  2. MULTI-VITAMIN [Concomitant]
  3. YASMIN [Suspect]
     Indication: PREMENSTRUAL SYNDROME
  4. MELATONIN [Concomitant]
     Indication: SLEEP DISORDER
  5. PICOMILION [Concomitant]
     Indication: SLEEP DISORDER
  6. DROSPIRENONE AND ETHINYL ESTRADIOL [Suspect]
     Indication: CONTRACEPTION
  7. YASMIN [Suspect]
     Indication: POLYCYSTIC OVARIES
     Dosage: UNK
     Dates: start: 20070101, end: 20080701
  8. YAZ [Suspect]
     Indication: POLYCYSTIC OVARIES
  9. DROSPIRENONE AND ETHINYL ESTRADIOL [Suspect]
     Indication: POLYCYSTIC OVARIES
     Dosage: UNK
     Dates: start: 20080801, end: 20081001
  10. YAZ [Suspect]
     Indication: PREMENSTRUAL SYNDROME
     Dosage: UNK
     Dates: start: 20081101, end: 20091001
  11. YAZ [Suspect]
     Indication: CONTRACEPTION
  12. YASMIN [Suspect]
     Indication: CONTRACEPTION
  13. DROSPIRENONE AND ETHINYL ESTRADIOL [Suspect]
     Indication: PREMENSTRUAL SYNDROME
  14. B-COMPLEX [VITAMIN B NOS] [Concomitant]

REACTIONS (8)
  - EMOTIONAL DISTRESS [None]
  - CHOLECYSTITIS ACUTE [None]
  - GENERAL PHYSICAL HEALTH DETERIORATION [None]
  - ANHEDONIA [None]
  - PAIN [None]
  - ANXIETY [None]
  - GALLBLADDER INJURY [None]
  - INJURY [None]
